FAERS Safety Report 16652967 (Version 2)
Quarter: 2022Q1

REPORT INFORMATION
  Report Type: Spontaneous
  Country: FR (occurrence: FR)
  Receive Date: 20190731
  Receipt Date: 20220107
  Transmission Date: 20220423
  Serious: Yes (Congenital Anomaly, Other)
  Sender: FDA-Public Use
  Company Number: FR-ABBVIE-19K-056-2871311-00

PATIENT
  Sex: Male

DRUGS (2)
  1. VALPROATE SODIUM [Suspect]
     Active Substance: VALPROATE SODIUM
     Indication: Maternal exposure timing unspecified
     Route: 064
  2. FOLIC ACID [Concomitant]
     Active Substance: FOLIC ACID
     Indication: Product used for unknown indication

REACTIONS (40)
  - Dysmorphism [Not Recovered/Not Resolved]
  - Multiple congenital abnormalities [Unknown]
  - Talipes [Unknown]
  - Congenital knee deformity [Unknown]
  - Kyphosis [Unknown]
  - Brachydactyly [Unknown]
  - Arachnodactyly [Unknown]
  - Joint laxity [Unknown]
  - Cryptorchism [Unknown]
  - Strabismus [Unknown]
  - Speech disorder developmental [Unknown]
  - Obstructive airways disorder [Unknown]
  - Respiratory muscle weakness [Unknown]
  - Lordosis [Unknown]
  - Kyphosis congenital [Unknown]
  - Eye disorder [Unknown]
  - Lordosis [Unknown]
  - Pectus excavatum [Unknown]
  - Migraine [Unknown]
  - Neurodevelopmental disorder [Unknown]
  - Limb malformation [Unknown]
  - Aphasia [Unknown]
  - Dyslexia [Unknown]
  - Scoliosis [Unknown]
  - Disturbance in attention [Unknown]
  - Social avoidant behaviour [Unknown]
  - Congenital genital malformation [Unknown]
  - Brachymetatarsia [Unknown]
  - Umbilical hernia [Unknown]
  - Dysgraphia [Unknown]
  - Obstructive airways disorder [Unknown]
  - Respiratory muscle weakness [Unknown]
  - Cough [Unknown]
  - Skin striae [Unknown]
  - Ear, nose and throat disorder [Unknown]
  - Ear, nose and throat disorder [Unknown]
  - Nasal disorder [Unknown]
  - Respiratory disorder [Unknown]
  - Increased bronchial secretion [Unknown]
  - Foetal exposure during pregnancy [Unknown]

NARRATIVE: CASE EVENT DATE: 20021001
